FAERS Safety Report 20681119 (Version 4)
Quarter: 2025Q2

REPORT INFORMATION
  Report Type: Report from Study
  Country: US (occurrence: US)
  Receive Date: 20220406
  Receipt Date: 20250523
  Transmission Date: 20250716
  Serious: No
  Sender: KYOWA
  Company Number: US-KYOWAKIRIN-2022BKK004674

PATIENT

DRUGS (4)
  1. BUROSUMAB [Suspect]
     Active Substance: BUROSUMAB
     Indication: Hereditary hypophosphataemic rickets
     Dosage: 20 MG, 1X/2 WEEKS
     Route: 058
     Dates: start: 20200930
  2. BUROSUMAB [Suspect]
     Active Substance: BUROSUMAB
     Indication: Phosphorus metabolism disorder
     Dosage: 40 MG, 1X/2 WEEKS
     Route: 058
     Dates: start: 20200916
  3. BUROSUMAB [Suspect]
     Active Substance: BUROSUMAB
     Dosage: 40 MG, 1X/2 WEEKS
     Route: 058
     Dates: start: 20240804
  4. BUROSUMAB [Suspect]
     Active Substance: BUROSUMAB
     Dosage: 40 MG, 1X/2 WEEKS
     Route: 058

REACTIONS (5)
  - Knee deformity [Unknown]
  - Bone pain [Unknown]
  - Pyrexia [Unknown]
  - Arthralgia [Unknown]
  - Toothache [Unknown]
